FAERS Safety Report 24259143 (Version 1)
Quarter: 2024Q3

REPORT INFORMATION
  Report Type: Spontaneous
  Country: MY (occurrence: MY)
  Receive Date: 20240828
  Receipt Date: 20240828
  Transmission Date: 20241017
  Serious: Yes (Life-Threatening, Hospitalization, Other)
  Sender: ACCORD
  Company Number: MY-Accord-443444

PATIENT
  Age: 67 Year
  Sex: Male

DRUGS (2)
  1. CISPLATIN [Suspect]
     Active Substance: CISPLATIN
     Indication: Pancreatic carcinoma stage II
     Dosage: FOURTH CYCLE WAS ADMINISTERED JUST FIVE DAYS BEFORE ADMISSION.
  2. GEMCITABINE [Suspect]
     Active Substance: GEMCITABINE
     Indication: Pancreatic carcinoma stage II
     Dosage: FOURTH CYCLE WAS ADMINISTERED JUST FIVE DAYS BEFORE ADMISSION.

REACTIONS (9)
  - Vibrio vulnificus infection [Recovering/Resolving]
  - Septic shock [Recovering/Resolving]
  - Bradycardia [Recovering/Resolving]
  - Sepsis [Recovering/Resolving]
  - Loss of consciousness [Recovering/Resolving]
  - Acute kidney injury [Recovering/Resolving]
  - Ventricular tachycardia [Recovered/Resolved]
  - Hypertransaminasaemia [Recovering/Resolving]
  - Off label use [Unknown]
